FAERS Safety Report 8295453-5 (Version None)
Quarter: 2012Q2

REPORT INFORMATION
  Report Type: 
  Country: None (occurrence: None)
  Receive Date: 20120418
  Receipt Date: 20120411
  Transmission Date: 20120825
  Serious: Yes (Hospitalization)
  Sender: FDA-Public Use
  Company Number: US-BAYER-2012-006918

PATIENT
  Age: 28 Year
  Sex: Female
  Weight: 58.957 kg

DRUGS (9)
  1. YAZ [Suspect]
     Indication: CONTRACEPTION
     Dosage: UNK
     Route: 048
     Dates: start: 20090101, end: 20100801
  2. ALBUTEROL [Concomitant]
     Dosage: UNK
     Dates: start: 20080101, end: 20110101
  3. DROSPIRENONE AND ETHINYL ESTRADIOL [Suspect]
     Indication: CONTRACEPTION
     Dosage: UNK
     Route: 048
     Dates: start: 20100801, end: 20101201
  4. IBUPROFEN [Concomitant]
     Indication: PAIN
     Dosage: 800 MG, UNK
     Route: 048
     Dates: start: 20101201, end: 20101203
  5. ALLERGY SHOTS [Concomitant]
     Indication: SEASONAL ALLERGY
     Dosage: UNK
     Dates: start: 20090101
  6. MORPHINE [Concomitant]
     Indication: PAIN
     Dosage: 10 MG, UNK
     Dates: start: 20101203
  7. PREDNISONE TAB [Concomitant]
     Dosage: UNK
     Route: 048
     Dates: start: 20101123, end: 20101130
  8. AMOX/K CLAV [Concomitant]
     Indication: EAR PAIN
     Dosage: 875 MG, BID
     Dates: start: 20101123, end: 20101218
  9. ADDERALL 5 [Concomitant]
     Indication: ATTENTION DEFICIT/HYPERACTIVITY DISORDER
     Dosage: UNK
     Route: 048
     Dates: start: 20080101

REACTIONS (4)
  - PAIN [None]
  - CEREBRAL VENOUS THROMBOSIS [None]
  - EMOTIONAL DISTRESS [None]
  - ANXIETY [None]
